FAERS Safety Report 9689733 (Version 3)
Quarter: 2013Q4

REPORT INFORMATION
  Report Type: Spontaneous
  Country: DE (occurrence: DE)
  Receive Date: 20131115
  Receipt Date: 20131224
  Transmission Date: 20140711
  Serious: Yes (Hospitalization)
  Sender: FDA-Public Use
  Company Number: DE-JNJFOC-20131102679

PATIENT
  Age: 78 Year
  Sex: Male

DRUGS (7)
  1. RISPERDAL [Suspect]
     Indication: PRODUCT USED FOR UNKNOWN INDICATION
     Route: 048
     Dates: end: 20130417
  2. RISPERDAL [Suspect]
     Indication: PRODUCT USED FOR UNKNOWN INDICATION
     Dosage: 2-3MG PER DAY
     Route: 048
     Dates: start: 20130301
  3. SEROQUEL [Suspect]
     Indication: PRODUCT USED FOR UNKNOWN INDICATION
     Route: 048
     Dates: start: 20130417, end: 20130422
  4. SEROQUEL [Suspect]
     Indication: PRODUCT USED FOR UNKNOWN INDICATION
     Route: 048
     Dates: start: 20130423, end: 20130423
  5. RIVOTRIL [Concomitant]
     Route: 048
  6. LYRICA [Concomitant]
     Dosage: FOR THE PAST FEW WEEKS
     Route: 048
     Dates: end: 20130417
  7. LYRICA [Concomitant]
     Route: 048
     Dates: start: 20130418

REACTIONS (3)
  - Dyskinesia [Recovered/Resolved]
  - Suicidal ideation [Recovered/Resolved]
  - Self injurious behaviour [Recovered/Resolved]
